FAERS Safety Report 26218993 (Version 1)
Quarter: 2025Q4

REPORT INFORMATION
  Report Type: Spontaneous
  Country: EU (occurrence: EU)
  Receive Date: 20251231
  Receipt Date: 20251231
  Transmission Date: 20260117
  Serious: Yes (Death)
  Sender: AMGEN
  Company Number: EU-AMGEN-SWESP2025254678

PATIENT
  Age: 6 Year
  Sex: Female

DRUGS (5)
  1. BEVACIZUMAB [Suspect]
     Active Substance: BEVACIZUMAB
     Indication: Glioblastoma
     Dosage: UNK
     Route: 065
  2. TEMOZOLOMIDE [Concomitant]
     Active Substance: TEMOZOLOMIDE
     Dosage: UNK
     Route: 065
  3. LOMUSTINE [Concomitant]
     Active Substance: LOMUSTINE
  4. LAROTRECTINIB [Concomitant]
     Active Substance: LAROTRECTINIB
  5. SIROLIMUS [Concomitant]
     Active Substance: SIROLIMUS

REACTIONS (3)
  - Glioblastoma [Fatal]
  - Drug ineffective for unapproved indication [Unknown]
  - Off label use [Unknown]
